FAERS Safety Report 7417162-4 (Version None)
Quarter: 2011Q2

REPORT INFORMATION
  Report Type: 
  Country: None (occurrence: None)
  Receive Date: 20110415
  Receipt Date: 20110323
  Transmission Date: 20111010
  Serious: Yes (Hospitalization, Other)
  Sender: FDA-Public Use
  Company Number: US-BAYER-201025202NA

PATIENT
  Age: 28 Year
  Sex: Female
  Weight: 59 kg

DRUGS (18)
  1. YAZ [Suspect]
     Indication: ORAL CONTRACEPTION
     Dosage: UNK
     Route: 048
     Dates: start: 20071101, end: 20090501
  2. IBUPROFEN [Concomitant]
     Dosage: 600 MG, UNK
     Route: 048
  3. OCELLA [Suspect]
     Indication: ENDOMETRIOSIS
  4. YASMIN [Suspect]
     Indication: ORAL CONTRACEPTION
     Dosage: UNK
     Route: 048
     Dates: start: 20071101, end: 20090501
  5. YAZ [Suspect]
     Indication: ENDOMETRIOSIS
  6. TRAMADOL [Concomitant]
     Dosage: 50 MG, UNK
     Route: 048
     Dates: start: 20080523
  7. ZOLOFT [Concomitant]
     Indication: DEPRESSION
     Dosage: UNK UNK, QD
     Route: 048
     Dates: start: 20080607
  8. NYSTATIN [Concomitant]
     Dosage: UNK UNK, TID
     Route: 048
     Dates: start: 20081005
  9. PROPOXYPHENE NAPSYLATE W/ ACETAMINOPHEN [Concomitant]
     Indication: PELVIC PAIN
     Dosage: TABLET
     Route: 048
     Dates: start: 20080919
  10. HYDROXYZINE HCL [Concomitant]
     Indication: NAUSEA
     Dosage: 25 MG, Q4HR
     Route: 048
     Dates: start: 20081231
  11. FLUCONAZOLE [Concomitant]
     Dosage: 150 MG, UNK
     Route: 048
     Dates: start: 20081001
  12. SULFAMETHOXAZOLE AND TRIMETHOPRIM [Concomitant]
     Dosage: UNK UNK, BID
     Route: 048
     Dates: start: 20081001
  13. PREDNISONE [Concomitant]
     Dosage: 40 MG, QD
     Route: 048
     Dates: start: 20081005
  14. ZOFRAN [Concomitant]
     Indication: NAUSEA
     Dosage: UNK UNK, ONCE
  15. OCELLA [Suspect]
     Indication: ORAL CONTRACEPTION
     Dosage: UNK
     Dates: start: 20081101, end: 20090501
  16. ONDANSETRON [Concomitant]
     Indication: NAUSEA
     Dosage: 4 MG, TID
     Route: 048
     Dates: start: 20070914
  17. EXLAX [PHENOLPHTHALEIN] [Concomitant]
     Indication: CONSTIPATION
  18. YASMIN [Suspect]
     Indication: ENDOMETRIOSIS
     Dosage: UNK
     Dates: start: 20090514, end: 20090516

REACTIONS (4)
  - THROMBOSIS [None]
  - PULMONARY EMBOLISM [None]
  - COLITIS ISCHAEMIC [None]
  - DEEP VEIN THROMBOSIS [None]
